FAERS Safety Report 21626466 (Version 1)
Quarter: 2022Q4

REPORT INFORMATION
  Report Type: Spontaneous
  Country: US (occurrence: US)
  Receive Date: 20221122
  Receipt Date: 20221122
  Transmission Date: 20230113
  Serious: No
  Sender: FDA-Public Use
  Company Number: US-AUROBINDO-AUR-APL-2022-036265

PATIENT
  Age: 1 Year
  Weight: 12 kg

DRUGS (3)
  1. FLUCONAZOLE [Suspect]
     Active Substance: FLUCONAZOLE
     Indication: Tinea versicolour
     Dosage: 300 MILLIGRAM, ONE TIME PRESCRIBED 02 TIMES ADMINISTRATION A WEEK APART
     Route: 063
     Dates: start: 20220815, end: 20220815
  2. FERROUS SULFATE [Concomitant]
     Active Substance: FERROUS SULFATE
     Indication: Iron deficiency
     Dosage: UNK
     Route: 065
  3. FERROUS SULFATE [Concomitant]
     Active Substance: FERROUS SULFATE
     Indication: Anaemia

REACTIONS (2)
  - Diarrhoea [Not Recovered/Not Resolved]
  - Exposure via breast milk [Unknown]
